FAERS Safety Report 5295817-8 (Version None)
Quarter: 2007Q2

REPORT INFORMATION
  Report Type: 
  Country: None (occurrence: None)
  Receive Date: 20070406
  Receipt Date: 20070326
  Transmission Date: 20071010
  Serious: Yes (Congenital Anomaly, Other)
  Sender: FDA-Public Use
  Company Number: 2007RR-06589

PATIENT
  Sex: Male
  Weight: 3.6 kg

DRUGS (3)
  1. FLUOXETINE [Suspect]
     Indication: EATING DISORDER
     Dosage: 20 MG, TRANSPLACENTAL
     Route: 064
  2. ZOPICLONE(ZOPICLONE) UNKNOWN [Suspect]
     Indication: DEPRESSION
     Dosage: 7.5 MG, TRANSPLACENTAL
     Route: 064
  3. FOLIC ACID [Concomitant]

REACTIONS (4)
  - CLEFT PALATE [None]
  - CYANOSIS NEONATAL [None]
  - DRUG EXPOSURE DURING PREGNANCY [None]
  - SOMNOLENCE NEONATAL [None]
